FAERS Safety Report 6401814-9 (Version None)
Quarter: 2009Q4

REPORT INFORMATION
  Report Type: 
  Country: None (occurrence: None)
  Receive Date: 20091013
  Receipt Date: 20091013
  Transmission Date: 20100525
  Serious: No
  Sender: FDA-Public Use
  Company Number: None

PATIENT
  Age: 81 Year
  Sex: Male
  Weight: 72.5755 kg

DRUGS (1)
  1. LISINOPRIL [Suspect]

REACTIONS (2)
  - DISEASE RECURRENCE [None]
  - FACIAL PALSY [None]
